FAERS Safety Report 9218204 (Version 1)
Quarter: 2013Q2

REPORT INFORMATION
  Report Type: Spontaneous
  Country: US (occurrence: US)
  Receive Date: 20130408
  Receipt Date: 20130408
  Transmission Date: 20140414
  Serious: Yes (Other)
  Sender: FDA-Public Use
  Company Number: US-TARO-2013P1004230

PATIENT
  Sex: Female

DRUGS (1)
  1. METRONIDAZOLE [Suspect]
     Indication: ROSACEA
     Route: 061
     Dates: start: 1991

REACTIONS (3)
  - Hypoaesthesia [Not Recovered/Not Resolved]
  - Surgery [Recovered/Resolved]
  - Fall [Recovered/Resolved]
